FAERS Safety Report 14498101 (Version 4)
Quarter: 2018Q1

REPORT INFORMATION
  Report Type: Report from Study
  Country: US (occurrence: US)
  Receive Date: 20180207
  Receipt Date: 20180316
  Transmission Date: 20180509
  Serious: Yes (Death, Hospitalization)
  Sender: FDA-Public Use
  Company Number: US-ACTELION-A-NJ2018-165851

PATIENT
  Age: 50 Year
  Sex: Female
  Weight: 92.97 kg

DRUGS (3)
  1. SILDENAFIL CITRATE. [Concomitant]
     Active Substance: SILDENAFIL CITRATE
  2. UPTRAVI [Suspect]
     Active Substance: SELEXIPAG
     Indication: PULMONARY ARTERIAL HYPERTENSION
     Dosage: 1200 MCG, BID
     Route: 048
  3. UPTRAVI [Suspect]
     Active Substance: SELEXIPAG
     Dosage: 1000 MCG, BID
     Route: 048

REACTIONS (14)
  - Haemoglobinaemia [Unknown]
  - Gastrointestinal viral infection [Unknown]
  - Blepharitis [Unknown]
  - Arthralgia [Unknown]
  - Respiratory failure [Fatal]
  - Staphylococcal infection [Fatal]
  - Haemorrhage [Unknown]
  - Acute respiratory distress syndrome [Fatal]
  - Transfusion [Unknown]
  - Eye pain [Unknown]
  - Sleep apnoea syndrome [Unknown]
  - Headache [Unknown]
  - Influenza [Fatal]
  - Anaemia [Unknown]
